FAERS Safety Report 9845039 (Version 1)
Quarter: 2014Q1

REPORT INFORMATION
  Report Type: Spontaneous
  Country: US (occurrence: None)
  Receive Date: 20140123
  Receipt Date: 20140123
  Transmission Date: 20141002
  Serious: Yes (Death)
  Sender: FDA-Public Use
  Company Number: 2014AP000369

PATIENT
  Age: 22 Year
  Sex: Male

DRUGS (4)
  1. TRAMADOL HYDROCHLORIDE TABLETS [Suspect]
     Route: 048
  2. ALPRAZOLAM [Suspect]
     Route: 048
  3. ACETAMINOPHEN W/PROPOXYPHENE [Suspect]
     Route: 048
  4. ETHANOL [Suspect]
     Route: 048

REACTIONS (1)
  - Completed suicide [None]
